FAERS Safety Report 16440103 (Version 1)
Quarter: 2019Q2

REPORT INFORMATION
  Report Type: Spontaneous
  Country: US (occurrence: US)
  Receive Date: 20190617
  Receipt Date: 20190617
  Transmission Date: 20190711
  Serious: No
  Sender: FDA-Public Use
  Company Number: US-CELGENEUS-USA-20190604637

PATIENT
  Age: 73 Year
  Sex: Female

DRUGS (1)
  1. OTEZLA [Suspect]
     Active Substance: APREMILAST
     Indication: PRODUCT USED FOR UNKNOWN INDICATION
     Route: 065
     Dates: start: 20181025

REACTIONS (6)
  - Dizziness [Unknown]
  - Disturbance in attention [Unknown]
  - Headache [Unknown]
  - Paraesthesia [Unknown]
  - Peripheral swelling [Unknown]
  - Burning sensation [Unknown]

NARRATIVE: CASE EVENT DATE: 20190514
